FAERS Safety Report 15929101 (Version 3)
Quarter: 2020Q2

REPORT INFORMATION
  Report Type: Spontaneous
  Country: US (occurrence: US)
  Receive Date: 20190206
  Receipt Date: 20200515
  Transmission Date: 20200713
  Serious: Yes (Death, Other)
  Sender: FDA-Public Use
  Company Number: US-ASTRAZENECA-2018SF14392

PATIENT
  Age: 24048 Day
  Sex: Male
  Weight: 102.1 kg

DRUGS (44)
  1. VERAPAMIL [Concomitant]
     Active Substance: VERAPAMIL HYDROCHLORIDE
     Dates: start: 19980103
  2. HYDROCOD/APAP [Concomitant]
     Dates: start: 19980814
  3. AZITHROMYCIN ANHYDROUS. [Concomitant]
     Active Substance: AZITHROMYCIN ANHYDROUS
     Dates: start: 20080831
  4. BENZONATATE. [Concomitant]
     Active Substance: BENZONATATE
     Dates: start: 20090416
  5. ELAVIL [Concomitant]
     Active Substance: AMITRIPTYLINE HYDROCHLORIDE
  6. THIAMINE. [Concomitant]
     Active Substance: THIAMINE
  7. LISINOPRIL. [Concomitant]
     Active Substance: LISINOPRIL
     Dates: start: 20061212
  8. NAPROXEN. [Concomitant]
     Active Substance: NAPROXEN
     Dates: start: 20090815
  9. SPIRONOLACTONE. [Concomitant]
     Active Substance: SPIRONOLACTONE
     Dates: start: 20111126
  10. ZOCOR [Concomitant]
     Active Substance: SIMVASTATIN
  11. PREVACID 24 HR [Suspect]
     Active Substance: LANSOPRAZOLE
     Route: 065
     Dates: start: 2005, end: 2012
  12. AMITRIPTYLIN [Concomitant]
     Active Substance: AMITRIPTYLINE
     Dates: start: 20041105
  13. HYDROCHLOROTHIAZIDE. [Concomitant]
     Active Substance: HYDROCHLOROTHIAZIDE
     Dates: start: 20041228
  14. ULTRAM [Concomitant]
     Active Substance: TRAMADOL HYDROCHLORIDE
     Dates: start: 20000803
  15. ACETAMINOPHEN AND CODEINE [Concomitant]
     Active Substance: ACETAMINOPHEN\CODEINE PHOSPHATE
     Dates: start: 19991004
  16. PREDNISONE. [Concomitant]
     Active Substance: PREDNISONE
     Dates: start: 20051017
  17. CIPROFLOXACIN. [Concomitant]
     Active Substance: CIPROFLOXACIN
     Dates: start: 20060124
  18. LIPITOR [Concomitant]
     Active Substance: ATORVASTATIN CALCIUM
     Dates: start: 20111126
  19. METOPROLOL TARTRATE. [Concomitant]
     Active Substance: METOPROLOL TARTRATE
     Dates: start: 20120308
  20. PEPCID [Concomitant]
     Active Substance: FAMOTIDINE
  21. AVANDIA [Concomitant]
     Active Substance: ROSIGLITAZONE MALEATE
  22. AVAPRO [Concomitant]
     Active Substance: IRBESARTAN
  23. LORAZEPAM. [Concomitant]
     Active Substance: LORAZEPAM
     Dates: start: 19980615
  24. ZANTAC [Concomitant]
     Active Substance: RANITIDINE HYDROCHLORIDE
  25. GLUCOPHAGE [Concomitant]
     Active Substance: METFORMIN HYDROCHLORIDE
     Dates: start: 19971003
  26. GLIPIZIDE. [Concomitant]
     Active Substance: GLIPIZIDE
     Dates: start: 19971003
  27. WELLBUTRIN [Concomitant]
     Active Substance: BUPROPION HYDROCHLORIDE
     Dates: start: 19991006
  28. FLUOXETINE [Concomitant]
     Active Substance: FLUOXETINE HYDROCHLORIDE
     Dates: start: 20020628
  29. HALOPERIDOL. [Concomitant]
     Active Substance: HALOPERIDOL
     Dates: start: 20110420
  30. ATROVENT [Concomitant]
     Active Substance: IPRATROPIUM BROMIDE
  31. METOPROLOL. [Concomitant]
     Active Substance: METOPROLOL
  32. PRILOSEC [Suspect]
     Active Substance: OMEPRAZOLE MAGNESIUM
     Route: 048
     Dates: start: 2005, end: 2012
  33. PRILOSEC OTC [Suspect]
     Active Substance: OMEPRAZOLE MAGNESIUM
     Route: 048
     Dates: start: 2005, end: 2012
  34. PREVACID [Suspect]
     Active Substance: LANSOPRAZOLE
     Route: 065
     Dates: start: 2005, end: 2012
  35. ALPRAZOLAM. [Concomitant]
     Active Substance: ALPRAZOLAM
     Dates: start: 20001102
  36. AMANTADINE. [Concomitant]
     Active Substance: AMANTADINE HYDROCHLORIDE
     Dates: start: 20060328
  37. LOVENOX [Concomitant]
     Active Substance: ENOXAPARIN SODIUM
  38. NEXIUM [Suspect]
     Active Substance: ESOMEPRAZOLE MAGNESIUM
     Route: 048
     Dates: start: 2005, end: 2012
  39. NEXIUM 24HR [Suspect]
     Active Substance: ESOMEPRAZOLE MAGNESIUM
     Route: 048
     Dates: start: 2005, end: 2012
  40. AMLODIPINE BESYLATE. [Concomitant]
     Active Substance: AMLODIPINE BESYLATE
     Dates: start: 20110211
  41. VASOTEC [Concomitant]
     Active Substance: ENALAPRIL MALEATE
     Dates: start: 19980326
  42. CEPHALEXIN. [Concomitant]
     Active Substance: CEPHALEXIN
     Dates: start: 19980814
  43. PRECOSE [Concomitant]
     Active Substance: ACARBOSE
     Dates: start: 19980914
  44. LASIX [Concomitant]
     Active Substance: FUROSEMIDE

REACTIONS (6)
  - Chronic kidney disease [Unknown]
  - Dyspepsia [Unknown]
  - Swelling [Not Recovered/Not Resolved]
  - Death [Fatal]
  - Renal failure [Unknown]
  - Cardiac failure congestive [Unknown]

NARRATIVE: CASE EVENT DATE: 20120313
